FAERS Safety Report 20850191 (Version 2)
Quarter: 2022Q4

REPORT INFORMATION
  Report Type: Report from Study
  Country: US (occurrence: US)
  Receive Date: 20220519
  Receipt Date: 20221108
  Transmission Date: 20230113
  Serious: Yes (Hospitalization, Other)
  Sender: FDA-Public Use
  Company Number: US-UCBSA-2022025490

PATIENT
  Sex: Male

DRUGS (4)
  1. LACOSAMIDE [Suspect]
     Active Substance: LACOSAMIDE
     Indication: Epilepsy
     Dosage: 200 MILLIGRAM, 2X/DAY (BID)
  2. LACOSAMIDE [Suspect]
     Active Substance: LACOSAMIDE
     Dosage: 50MG TWICE A WEEK
  3. BRIVIACT [Suspect]
     Active Substance: BRIVARACETAM
     Indication: Product used for unknown indication
     Dosage: 100 MILLIGRAM, 2X/DAY (BID)
  4. GABAPENTIN [Suspect]
     Active Substance: GABAPENTIN
     Indication: Product used for unknown indication
     Dosage: UNK

REACTIONS (13)
  - Therapeutic procedure [Unknown]
  - Adverse event [Unknown]
  - Abnormal behaviour [Unknown]
  - Heart rate decreased [Not Recovered/Not Resolved]
  - Hypersomnia [Not Recovered/Not Resolved]
  - Defaecation urgency [Unknown]
  - Blood potassium increased [Not Recovered/Not Resolved]
  - Blood creatinine increased [Not Recovered/Not Resolved]
  - Cardiac assistance device user [Not Recovered/Not Resolved]
  - Fatigue [Not Recovered/Not Resolved]
  - Therapy interrupted [Unknown]
  - Drug ineffective [Unknown]
  - Inappropriate schedule of product administration [Unknown]

NARRATIVE: CASE EVENT DATE: 20220101
